FAERS Safety Report 18383693 (Version 1)
Quarter: 2020Q4

REPORT INFORMATION
  Report Type: Spontaneous
  Country: TR (occurrence: TR)
  Receive Date: 20201014
  Receipt Date: 20201014
  Transmission Date: 20210114
  Serious: Yes (Life-Threatening, Hospitalization, Disabling)
  Sender: FDA-Public Use
  Company Number: TR-PFIZER INC-2020395686

PATIENT
  Age: 73 Year
  Sex: Female
  Weight: 83 kg

DRUGS (1)
  1. DETRUSITOL [Suspect]
     Active Substance: TOLTERODINE TARTRATE
     Indication: URINARY INCONTINENCE
     Dosage: UNK
     Route: 048

REACTIONS (6)
  - Asthenia [Unknown]
  - Memory impairment [Not Recovered/Not Resolved]
  - Confusional state [Not Recovered/Not Resolved]
  - Headache [Unknown]
  - Hyponatraemia [Recovered/Resolved with Sequelae]
  - Hallucination [Unknown]

NARRATIVE: CASE EVENT DATE: 20170823
